FAERS Safety Report 22787208 (Version 4)
Quarter: 2023Q4

REPORT INFORMATION
  Report Type: Report from Study
  Country: BR (occurrence: BR)
  Receive Date: 20230804
  Receipt Date: 20231212
  Transmission Date: 20240110
  Serious: Yes (Other)
  Sender: FDA-Public Use
  Company Number: BR-002147023-NVSC2023BR159988

PATIENT
  Age: 66 Year
  Sex: Female

DRUGS (5)
  1. KISQALI [Suspect]
     Active Substance: RIBOCICLIB
     Indication: Breast cancer
     Dosage: UNK
     Route: 065
  2. KISQALI [Suspect]
     Active Substance: RIBOCICLIB
     Dosage: 600 MG
     Route: 065
  3. KISQALI [Suspect]
     Active Substance: RIBOCICLIB
     Dosage: 400 MG (2 TABLETS)
     Route: 065
  4. KISQALI [Suspect]
     Active Substance: RIBOCICLIB
     Dosage: UNK
     Route: 065
  5. FULVESTRANT [Suspect]
     Active Substance: FULVESTRANT
     Indication: Product used for unknown indication
     Dosage: UNK, QMO
     Route: 065

REACTIONS (12)
  - Humoral immune defect [Recovered/Resolved]
  - Decreased immune responsiveness [Recovered/Resolved]
  - Nasal dryness [Recovered/Resolved]
  - Dry mouth [Recovered/Resolved]
  - Dry skin [Recovered/Resolved]
  - Pruritus [Unknown]
  - Depressed mood [Unknown]
  - Asthenia [Recovered/Resolved]
  - Drug metabolite level [Unknown]
  - Body temperature [Unknown]
  - Drug intolerance [Unknown]
  - Feeling hot [Unknown]

NARRATIVE: CASE EVENT DATE: 20230711
